FAERS Safety Report 9517794 (Version 3)
Quarter: 2014Q2

REPORT INFORMATION
  Report Type: Report from Study
  Country: VE (occurrence: VE)
  Receive Date: 20130912
  Receipt Date: 20140528
  Transmission Date: 20141212
  Serious: Yes (Hospitalization)
  Sender: FDA-Public Use
  Company Number: VE-ROCHE-1272999

PATIENT
  Age: 45 Year
  Sex: Male

DRUGS (10)
  1. XOLAIR [Suspect]
     Indication: ASTHMA
     Route: 058
     Dates: start: 2005
  2. XOLAIR [Suspect]
     Indication: FIBROSIS
     Route: 058
     Dates: end: 2011
  3. XOLAIR [Suspect]
     Route: 058
     Dates: start: 20130916
  4. XOLAIR [Suspect]
     Route: 058
     Dates: end: 201403
  5. FORADIL [Suspect]
     Indication: ASTHMA
     Dosage: 1 UKN
     Route: 065
     Dates: start: 2006
  6. FORADIL [Suspect]
     Route: 065
  7. MIFLONIDE [Suspect]
     Indication: ASTHMA
     Dosage: 1 UKN
     Route: 065
     Dates: start: 2006
  8. MIFLONIDE [Suspect]
     Route: 065
  9. VANNAIR [Concomitant]
     Route: 065
     Dates: start: 2006
  10. THEOBID [Concomitant]
     Route: 065
     Dates: start: 2006

REACTIONS (7)
  - Malaise [Recovered/Resolved]
  - Interstitial lung disease [Recovered/Resolved]
  - Asthma [Recovering/Resolving]
  - Pyrexia [Not Recovered/Not Resolved]
  - Lung infection [Not Recovered/Not Resolved]
  - Pneumonia [Not Recovered/Not Resolved]
  - Off label use [Unknown]
